FAERS Safety Report 4715507-7 (Version None)
Quarter: 2005Q3

REPORT INFORMATION
  Report Type: 
  Country: None (occurrence: None)
  Receive Date: 20050715
  Receipt Date: 20050715
  Transmission Date: 20060218
  Serious: Yes (Life-Threatening, Hospitalization)
  Sender: FDA-Public Use
  Company Number: None

PATIENT
  Age: 19 Year
  Sex: Female
  Weight: 63.5036 kg

DRUGS (1)
  1. PROZAC [Suspect]
     Indication: MAJOR DEPRESSION
     Dosage: ONE TIME PER DAY
     Dates: start: 20041201, end: 20050701

REACTIONS (5)
  - AGITATION [None]
  - CRYING [None]
  - EMOTIONAL DISTRESS [None]
  - PERSONALITY CHANGE [None]
  - SUICIDAL IDEATION [None]
